FAERS Safety Report 23136886 (Version 1)
Quarter: 2023Q4

REPORT INFORMATION
  Report Type: Spontaneous
  Country: FR (occurrence: FR)
  Receive Date: 20231102
  Receipt Date: 20231102
  Transmission Date: 20240109
  Serious: Yes (Other)
  Sender: FDA-Public Use
  Company Number: FR-AFSSAPS-MA2023002578

PATIENT
  Age: 60 Year
  Sex: Female

DRUGS (4)
  1. LEVOCETIRIZINE [Suspect]
     Active Substance: LEVOCETIRIZINE
     Indication: Cough
     Dosage: 10 MILLIGRAM (MG/JOUR)
     Route: 048
     Dates: start: 20230831
  2. BUDESONIDE [Suspect]
     Active Substance: BUDESONIDE
     Indication: Cough
     Dosage: 1 MILLIGRAM
     Dates: start: 20230831
  3. IPRATROPIUM BROMIDE\FENOTEROL HYDROBROMIDE [Suspect]
     Active Substance: FENOTEROL HYDROBROMIDE\IPRATROPIUM BROMIDE
     Indication: Cough
     Dosage: 1 DOSAGE FORM
     Dates: start: 20230831
  4. TERBUTALINE [Suspect]
     Active Substance: TERBUTALINE
     Indication: Cough
     Dosage: 1 DOSAGE FORM
     Dates: start: 20230831

REACTIONS (2)
  - Agitation [Recovering/Resolving]
  - Insomnia [Recovering/Resolving]

NARRATIVE: CASE EVENT DATE: 20230916
